FAERS Safety Report 18671784 (Version 2)
Quarter: 2021Q1

REPORT INFORMATION
  Report Type: Spontaneous
  Country: FR (occurrence: FR)
  Receive Date: 20201228
  Receipt Date: 20210107
  Transmission Date: 20210419
  Serious: Yes (Hospitalization)
  Sender: FDA-Public Use
  Company Number: FR-EMD SERONO-E2B_90081786

PATIENT
  Age: 82 Year
  Sex: Male
  Weight: 109 kg

DRUGS (11)
  1. PARACETAMOL [Concomitant]
     Active Substance: ACETAMINOPHEN
     Indication: PRODUCT USED FOR UNKNOWN INDICATION
     Dosage: THERAPY START DATE: 26 JUN 2020 (AS PER TRANSLATION DOCUMENT)
     Dates: start: 20190626
  2. TRIATEC                            /00885601/ [Suspect]
     Active Substance: RAMIPRIL
     Indication: HYPERTENSION
     Dosage: THERAPY START DATE: 26 JUN 2020 (AS PER TRANSLATION DOCUMENT)
     Route: 048
     Dates: start: 20190626, end: 201907
  3. BISOCE [Concomitant]
     Active Substance: BISOPROLOL
     Indication: PRODUCT USED FOR UNKNOWN INDICATION
     Dosage: THERAPY START DATE: 26 JUN 2020 (AS PER TRANSLATION DOCUMENT)
     Dates: start: 20190626
  4. RISPERDAL [Concomitant]
     Active Substance: RISPERIDONE
     Indication: PRODUCT USED FOR UNKNOWN INDICATION
     Dosage: THERAPY START DATE: 26 JUN 2020 (AS PER TRANSLATION DOCUMENT)
     Dates: start: 20190626
  5. METFORMIN [Suspect]
     Active Substance: METFORMIN HYDROCHLORIDE
     Indication: TYPE 2 DIABETES MELLITUS
     Dosage: THERAPY START DATE: 26 JUN 2020 (AS PER TRANSLATION DOCUMENT)
     Route: 048
     Dates: start: 20190626, end: 201907
  6. BORIC ACID [Concomitant]
     Active Substance: BORIC ACID
     Indication: CONJUNCTIVITIS
     Dosage: THERAPY START DATE: 26 JUN 2020 (AS PER TRANSLATION DOCUMENT)
     Dates: start: 20190626
  7. LASILIX                            /00032601/ [Suspect]
     Active Substance: FUROSEMIDE
     Indication: PRODUCT USED FOR UNKNOWN INDICATION
     Dosage: THERAPY START DATE: 26 JUN 2020 (AS PER TRANSLATION DOCUMENT)
     Route: 048
     Dates: start: 20190626, end: 201907
  8. WARFARIN [Concomitant]
     Active Substance: WARFARIN
     Indication: PRODUCT USED FOR UNKNOWN INDICATION
     Dosage: THERAPY START DATE: 26 JUN 2020 (AS PER TRANSLATION DOCUMENT)
     Dates: start: 20190626
  9. RIFAMYCIN [Concomitant]
     Active Substance: RIFAMYCIN
     Indication: CONJUNCTIVITIS
     Dosage: THERAPY START DATE: 26 JUN 2020 (AS PER TRANSLATION DOCUMENT)
     Dates: start: 20190626
  10. SERESTA [Concomitant]
     Active Substance: OXAZEPAM
     Indication: PRODUCT USED FOR UNKNOWN INDICATION
     Dosage: THERAPY START DATE: 26 JUN 2020 (AS PER TRANSLATION DOCUMENT)
     Dates: start: 20190626
  11. UROREC [Concomitant]
     Active Substance: SILODOSIN
     Indication: PRODUCT USED FOR UNKNOWN INDICATION
     Dosage: THERAPY START DATE: 26 JUN 2020 (AS PER TRANSLATION DOCUMENT)
     Dates: start: 20190626

REACTIONS (3)
  - Blood creatine increased [Recovered/Resolved]
  - Dehydration [Recovered/Resolved]
  - Lactic acidosis [Recovered/Resolved]

NARRATIVE: CASE EVENT DATE: 201906
